FAERS Safety Report 4294866-6 (Version None)
Quarter: 2004Q1

REPORT INFORMATION
  Report Type: 
  Country: None (occurrence: None)
  Receive Date: 20040216
  Receipt Date: 20030130
  Transmission Date: 20041129
  Serious: No
  Sender: FDA-Public Use
  Company Number: US-GLAXOSMITHKLINE-A0394741A

PATIENT
  Sex: Female

DRUGS (3)
  1. LAMICTAL [Suspect]
     Dosage: 150MG TWICE PER DAY
     Route: 048
     Dates: start: 20020701
  2. KLONOPIN [Concomitant]
  3. ZOLOFT [Concomitant]

REACTIONS (3)
  - AMNESIA [None]
  - HUNGER [None]
  - NAUSEA [None]
